FAERS Safety Report 8620189-8 (Version None)
Quarter: 2012Q3

REPORT INFORMATION
  Report Type: 
  Country: None (occurrence: None)
  Receive Date: 20120824
  Receipt Date: 20120817
  Transmission Date: 20120928
  Serious: Yes (Other)
  Sender: FDA-Public Use
  Company Number: PHHY2012BR072086

PATIENT
  Sex: Female

DRUGS (4)
  1. PROPRANOLOL [Suspect]
     Indication: HYPERTENSION
     Dosage: UNK
     Route: 048
  2. HYDROCHLOROTHIAZIDE [Concomitant]
     Indication: BLOOD PRESSURE INCREASED
  3. CAPTOPRIL [Suspect]
     Indication: DEPRESSION
  4. CAPTOPRIL [Suspect]
     Indication: HYPERTENSION
     Dosage: 25 MG, BID
     Route: 048

REACTIONS (8)
  - DEAFNESS [None]
  - HYPERTENSION [None]
  - HEADACHE [None]
  - POSTPARTUM DEPRESSION [None]
  - VIITH NERVE PARALYSIS [None]
  - COUGH [None]
  - DRUG INEFFECTIVE [None]
  - JAW DISORDER [None]
